FAERS Safety Report 21126580 (Version 1)
Quarter: 2022Q3

REPORT INFORMATION
  Report Type: Spontaneous
  Country: US (occurrence: US)
  Receive Date: 20220725
  Receipt Date: 20220725
  Transmission Date: 20221026
  Serious: Yes (Other)
  Sender: FDA-Public Use
  Company Number: US-SPECGX-T202200291

PATIENT
  Age: 61 Year
  Sex: Male

DRUGS (17)
  1. BUPRENORPHINE\NALOXONE [Suspect]
     Active Substance: BUPRENORPHINE\NALOXONE
     Indication: Drug use disorder
     Dosage: 2/0.5 MG (HD 4)
     Route: 065
  2. BUPRENORPHINE\NALOXONE [Suspect]
     Active Substance: BUPRENORPHINE\NALOXONE
     Dosage: 6 MG (A TOTAL OF THREE DOSES OF 2/ 0.5 MG)
     Route: 065
  3. IBUPROFEN [Suspect]
     Active Substance: IBUPROFEN
     Indication: Drug withdrawal maintenance therapy
     Dosage: 600 MILLIGRAM
     Route: 065
  4. CLONIDINE [Suspect]
     Active Substance: CLONIDINE
     Indication: Drug withdrawal maintenance therapy
     Dosage: 0.1 MILLIGRAM
     Route: 065
  5. CLONIDINE [Suspect]
     Active Substance: CLONIDINE
     Dosage: 0.1 MILLIGRAM, PRN (EVERY SIX HOURS, AS NEEDED)
     Route: 065
  6. ONDANSETRON [Suspect]
     Active Substance: ONDANSETRON
     Indication: Drug withdrawal maintenance therapy
     Dosage: 4 MILLIGRAM
     Route: 042
  7. DICYCLOMINE HYDROCHLORIDE [Suspect]
     Active Substance: DICYCLOMINE HYDROCHLORIDE
     Indication: Drug withdrawal maintenance therapy
     Dosage: UNK
     Route: 065
  8. LORAZEPAM [Suspect]
     Active Substance: LORAZEPAM
     Indication: Drug withdrawal maintenance therapy
     Dosage: 1 MILLIGRAM
     Route: 042
  9. HYDRALAZINE [Suspect]
     Active Substance: HYDRALAZINE HYDROCHLORIDE
     Indication: Drug withdrawal maintenance therapy
     Dosage: UNK
     Route: 042
  10. CHLORDIAZEPOXIDE [Suspect]
     Active Substance: CHLORDIAZEPOXIDE
     Indication: Drug withdrawal maintenance therapy
     Dosage: UNK
     Route: 048
  11. OXAZEPAM [Suspect]
     Active Substance: OXAZEPAM
     Indication: Drug withdrawal maintenance therapy
     Dosage: 15 MILLIGRAM, QD
     Route: 065
  12. OXAZEPAM [Suspect]
     Active Substance: OXAZEPAM
     Dosage: 30 MILLIGRAM, QD
     Route: 065
  13. MIRTAZAPINE [Concomitant]
     Active Substance: MIRTAZAPINE
     Indication: Mental disorder
     Dosage: 30 MILLIGRAM, QHS
     Route: 065
  14. LEDIPASVIR\SOFOSBUVIR [Concomitant]
     Active Substance: LEDIPASVIR\SOFOSBUVIR
     Indication: Hepatitis C
     Dosage: UNK
     Route: 065
  15. METOPROLOL [Concomitant]
     Active Substance: METOPROLOL
     Indication: Essential hypertension
     Dosage: 25 MILLIGRAM, BID
     Route: 065
  16. AMLODIPINE [Concomitant]
     Active Substance: AMLODIPINE BESYLATE
     Indication: Essential hypertension
     Dosage: 10 MILLIGRAM, QD
     Route: 065
  17. THIAMINE [Concomitant]
     Active Substance: THIAMINE
     Indication: Wernicke^s encephalopathy
     Dosage: UNK
     Route: 042

REACTIONS (7)
  - Delirium [Unknown]
  - Transient ischaemic attack [Unknown]
  - Blood pressure increased [Unknown]
  - Abdominal pain [Unknown]
  - Mental status changes [Unknown]
  - Withdrawal syndrome [Not Recovered/Not Resolved]
  - Treatment noncompliance [Unknown]
